FAERS Safety Report 7110384-1 (Version None)
Quarter: 2010Q4

REPORT INFORMATION
  Report Type: 
  Country: None (occurrence: None)
  Receive Date: 20101117
  Receipt Date: 20101117
  Transmission Date: 20110411
  Serious: Yes (Other)
  Sender: FDA-Public Use
  Company Number: None

PATIENT
  Sex: Female
  Weight: 71.2147 kg

DRUGS (1)
  1. ENBREL [Suspect]
     Indication: RHEUMATOID ARTHRITIS
     Dosage: WEEKLY SC
     Route: 058

REACTIONS (2)
  - NON-HODGKIN'S LYMPHOMA STAGE I [None]
  - NON-HODGKIN'S LYMPHOMA STAGE IV [None]
